FAERS Safety Report 5413419-7 (Version None)
Quarter: 2007Q3

REPORT INFORMATION
  Report Type: 
  Country: None (occurrence: None)
  Receive Date: 20070810
  Receipt Date: 20070806
  Transmission Date: 20080115
  Serious: Yes (Life-Threatening)
  Sender: FDA-Public Use
  Company Number: 2007S1000153

PATIENT
  Age: 2 Day
  Weight: 0.71 kg

DRUGS (7)
  1. NITRIC OXIDE [Suspect]
     Indication: LUNG DISORDER
     Dosage: 5 PPM;CONT;INH
     Route: 055
     Dates: start: 20070804
  2. MECLOCELIN [Concomitant]
  3. GENTAMYCIN-MP [Concomitant]
  4. ERYTHROMYCIN [Concomitant]
  5. INDOMETHACIN [Concomitant]
  6. DOPAMINE HCL [Concomitant]
  7. INSULIN [Concomitant]

REACTIONS (9)
  - HAEMORRHAGE NEONATAL [None]
  - HYPERGLYCAEMIA [None]
  - INTRAVENTRICULAR HAEMORRHAGE NEONATAL [None]
  - NEONATAL DISORDER [None]
  - NEONATAL HYPOTENSION [None]
  - NEONATAL INFECTION [None]
  - NEONATAL RESPIRATORY DISTRESS SYNDROME [None]
  - PLATELET COUNT DECREASED [None]
  - PULMONARY HAEMORRHAGE [None]
